FAERS Safety Report 10255369 (Version 1)
Quarter: 2014Q2

REPORT INFORMATION
  Report Type: Spontaneous
  Country: US (occurrence: US)
  Receive Date: 20140624
  Receipt Date: 20140624
  Transmission Date: 20141212
  Serious: No
  Sender: FDA-Public Use
  Company Number: US-PFIZER INC-2014169280

PATIENT
  Sex: Female

DRUGS (9)
  1. FLAGYL [Suspect]
     Dosage: UNK
  2. NEURONTIN [Suspect]
     Dosage: UNK
  3. AMOXICILLIN [Suspect]
     Dosage: UNK
  4. BENTYL [Suspect]
     Dosage: UNK
  5. CECLOR [Suspect]
     Dosage: UNK
  6. LAMISIL [Suspect]
     Dosage: UNK
  7. LORTAB [Suspect]
     Dosage: UNK
  8. TORADOL [Suspect]
     Dosage: UNK
  9. VERSED [Suspect]
     Dosage: UNK

REACTIONS (1)
  - Drug hypersensitivity [Unknown]
